FAERS Safety Report 5986657-2 (Version None)
Quarter: 2008Q4

REPORT INFORMATION
  Report Type: 
  Country: None (occurrence: None)
  Receive Date: 20081203
  Receipt Date: 20081120
  Transmission Date: 20090506
  Serious: Yes (Hospitalization)
  Sender: FDA-Public Use
  Company Number: 2008AL011911

PATIENT
  Age: 59 Year
  Sex: Female

DRUGS (3)
  1. LORAZEPAM [Suspect]
     Indication: DYSPHORIA
     Dosage: 2.5 MG;X1;PO
     Route: 048
  2. LORAZEPAM [Suspect]
     Indication: MANIA
     Dosage: 2.5 MG;X1;PO
     Route: 048
  3. QUETIAPINE FUMARATE [Concomitant]

REACTIONS (5)
  - ACUTE RESPIRATORY FAILURE [None]
  - ENURESIS [None]
  - LOSS OF CONSCIOUSNESS [None]
  - TACHYCARDIA [None]
  - UNRESPONSIVE TO STIMULI [None]
